FAERS Safety Report 20170042 (Version 1)
Quarter: 2021Q4

REPORT INFORMATION
  Report Type: Spontaneous
  Country: CN (occurrence: CN)
  Receive Date: 20211210
  Receipt Date: 20211210
  Transmission Date: 20220304
  Serious: Yes (Other)
  Sender: FDA-Public Use
  Company Number: CN-PFIZER INC-202101676568

PATIENT
  Age: 34 Year
  Sex: Male
  Weight: 64 kg

DRUGS (3)
  1. VFEND [Suspect]
     Active Substance: VORICONAZOLE
     Indication: Fungaemia
     Dosage: 0.2 G, 2X/DAY
     Route: 041
     Dates: start: 20211113, end: 20211116
  2. VFEND [Suspect]
     Active Substance: VORICONAZOLE
     Indication: Antifungal treatment
  3. POSACONAZOLE [Concomitant]
     Active Substance: POSACONAZOLE
     Indication: Antifungal treatment
     Dosage: UNK
     Dates: start: 20211113

REACTIONS (1)
  - Hepatic function abnormal [Recovering/Resolving]

NARRATIVE: CASE EVENT DATE: 20211116
